FAERS Safety Report 13234632 (Version 1)
Quarter: 2017Q1

REPORT INFORMATION
  Report Type: Spontaneous
  Country: US (occurrence: US)
  Receive Date: 20170215
  Receipt Date: 20170215
  Transmission Date: 20170428
  Serious: No
  Sender: FDA-Public Use
  Company Number: US-PFIZER INC-2017066363

PATIENT
  Age: 52 Year
  Sex: Male

DRUGS (5)
  1. PREDNISONE. [Concomitant]
     Active Substance: PREDNISONE
     Dosage: REDUCING BY ONE TABLET EVERY THREE DAYS
  2. PREDNISONE. [Concomitant]
     Active Substance: PREDNISONE
     Dosage: 5 MG, 6 A DAY
  3. PREDNISONE. [Concomitant]
     Active Substance: PREDNISONE
     Dosage: REDUCING BY ONE TABLET EVERY THREE DAYS
  4. GABAPENTIN. [Suspect]
     Active Substance: GABAPENTIN
     Dosage: 300 MG, 2X/DAY
  5. PREDNISONE. [Concomitant]
     Active Substance: PREDNISONE
     Dosage: 5 MG, FOUR DAILY

REACTIONS (3)
  - Blood pressure increased [Recovered/Resolved]
  - Pain [Unknown]
  - Chest pain [Recovered/Resolved]
